FAERS Safety Report 8039907-5 (Version None)
Quarter: 2012Q1

REPORT INFORMATION
  Report Type: 
  Country: None (occurrence: None)
  Receive Date: 20120111
  Receipt Date: 20111219
  Transmission Date: 20120608
  Serious: No
  Sender: FDA-Public Use
  Company Number: US-AMGEN-USASP2011067597

PATIENT
  Age: 38 Year
  Sex: Female

DRUGS (2)
  1. ENBREL [Suspect]
     Indication: PSORIATIC ARTHROPATHY
     Dosage: 25 MG, Q3WK
     Dates: start: 20031201
  2. TREXALL [Concomitant]
     Dosage: UNK, ONCE IN A WEEK
     Dates: start: 20100101

REACTIONS (2)
  - INJECTION SITE PAIN [None]
  - NEOPLASM [None]
